FAERS Safety Report 9755887 (Version 2)
Quarter: 2013Q4

REPORT INFORMATION
  Report Type: Spontaneous
  Country: DK (occurrence: DK)
  Receive Date: 20131213
  Receipt Date: 20131213
  Transmission Date: 20140711
  Serious: Yes (Disabling)
  Sender: FDA-Public Use
  Company Number: DK-GE HEALTHCARE MEDICAL DIAGNOSTICS-OSCN-NO-0903S-0167

PATIENT
  Age: 61 Year
  Sex: Male
  Weight: 83 kg

DRUGS (12)
  1. OMNISCAN [Suspect]
     Indication: PRODUCT USED FOR UNKNOWN INDICATION
  2. GADOLINIUM (UNSPECIFIED) [Suspect]
     Indication: RENAL HYPERTENSION
     Dates: start: 20020606, end: 20020606
  3. GADOLINIUM (UNSPECIFIED) [Suspect]
     Indication: RENAL FAILURE
     Route: 065
     Dates: start: 20020902, end: 20020902
  4. MELUMINE GADOTERATE (DOTAREM) [Concomitant]
     Indication: PRODUCT USED FOR UNKNOWN INDICATION
     Route: 042
     Dates: start: 20061003, end: 20061003
  5. FUROSEMIDE (FURIX) [Concomitant]
  6. METOPROLOL SUCCINATE (SELO-ZOK) [Concomitant]
  7. AMLODIPINE (NORVASC) [Concomitant]
  8. CALCIUM ACETATE (PHOS-EX) [Concomitant]
  9. EPOETIN BETA (NEORECORMON) [Concomitant]
  10. ALLOPURINOL (APURIN) [Concomitant]
  11. COLECALCIFEROL (ETHAPLHA) [Concomitant]
  12. EPOETIN ALFA (ERYTHROPCITIN) [Concomitant]

REACTIONS (1)
  - Nephrogenic systemic fibrosis [Not Recovered/Not Resolved]
